FAERS Safety Report 12596591 (Version 1)
Quarter: 2016Q3

REPORT INFORMATION
  Report Type: Spontaneous
  Country: US (occurrence: None)
  Receive Date: 20160725
  Receipt Date: 20160725
  Transmission Date: 20161109
  Serious: Yes (Hospitalization)
  Sender: FDA-Public Use
  Company Number: 2016-BI-36538BP

PATIENT
  Age: 77 Year
  Sex: Male

DRUGS (2)
  1. PLAVIX(CLOPIDOGREL BISULFATE)(CLOPIDOGREL BISULFATE) [Concomitant]
  2. PRADAXA [Suspect]
     Active Substance: DABIGATRAN ETEXILATE MESYLATE
     Indication: PRODUCT USED FOR UNKNOWN INDICATION
     Dosage: NR (NR,***),PO
     Route: 048
     Dates: end: 20160602

REACTIONS (1)
  - Wound decomposition [None]

NARRATIVE: CASE EVENT DATE: 20160602
